FAERS Safety Report 5727140-9 (Version None)
Quarter: 2008Q2

REPORT INFORMATION
  Report Type: 
  Country: None (occurrence: None)
  Receive Date: 20080505
  Receipt Date: 20080415
  Transmission Date: 20081010
  Serious: No
  Sender: FDA-Public Use
  Company Number: US-BAYER-200820120NA

PATIENT
  Sex: Male

DRUGS (2)
  1. ULTRAVIST (PHARMACY BULK) [Suspect]
     Indication: DRUG USE FOR UNKNOWN INDICATION
     Dates: start: 20071102, end: 20071102
  2. GASTROGRAFIN [Concomitant]
     Route: 048

REACTIONS (2)
  - RASH GENERALISED [None]
  - SNEEZING [None]
